FAERS Safety Report 8737921 (Version 2)
Quarter: 2013Q4

REPORT INFORMATION
  Report Type: Spontaneous
  Country: DE (occurrence: DE)
  Receive Date: 20120823
  Receipt Date: 20131031
  Transmission Date: 20140711
  Serious: Yes (Hospitalization)
  Sender: FDA-Public Use
  Company Number: DE-009507513-1208DEU006170

PATIENT
  Age: 83 Year
  Sex: Male
  Weight: 68 kg

DRUGS (5)
  1. ZOCOR FORTE 40MG FILMTABLETTEN [Suspect]
     Indication: CARDIOVASCULAR EVENT PROPHYLAXIS
     Dosage: 40 MG, QD
     Route: 048
  2. PRADAXA [Suspect]
     Indication: ATRIAL FIBRILLATION
     Dosage: 110 MG, BID
     Route: 048
     Dates: start: 20120110, end: 20120204
  3. DIGOXIN [Concomitant]
     Indication: ATRIAL TACHYCARDIA
     Dosage: 0.07 MG, QD
     Route: 048
  4. CARVEDILOL [Concomitant]
     Indication: CARDIAC FAILURE
     Dosage: 12.5 MG, BID
     Route: 048
  5. ENALAPRIL PLUS [Concomitant]
     Indication: HYPERTENSION
     Dosage: 1 DF, QD

REACTIONS (2)
  - Renal failure [Not Recovered/Not Resolved]
  - Rhabdomyolysis [Not Recovered/Not Resolved]
